FAERS Safety Report 18502983 (Version 1)
Quarter: 2020Q4

REPORT INFORMATION
  Report Type: Spontaneous
  Country: US (occurrence: US)
  Receive Date: 20201113
  Receipt Date: 20201113
  Transmission Date: 20210114
  Serious: Yes (Death, Other)
  Sender: FDA-Public Use
  Company Number: US-GALDERMA-US2020048727

PATIENT
  Age: 59 Year
  Sex: Female

DRUGS (10)
  1. IMMUNOGLOBULIN (IVIG) [Concomitant]
     Active Substance: HUMAN IMMUNOGLOBULIN G
     Indication: COVID-19
     Route: 042
     Dates: start: 20200320, end: 20200320
  2. HYDROXYCHLOROQUINE [Concomitant]
     Active Substance: HYDROXYCHLOROQUINE
     Dosage: FOR DAYS 1-4
     Dates: start: 20200321, end: 202003
  3. CEFEPIME [Concomitant]
     Active Substance: CEFEPIME HYDROCHLORIDE
     Indication: COVID-19
     Dates: start: 20200320, end: 20200330
  4. TACROLIMUS. [Concomitant]
     Active Substance: TACROLIMUS
     Indication: IMMUNOSUPPRESSANT DRUG THERAPY
     Dosage: 60% DOSE REDUCED
     Dates: end: 20200325
  5. DOXYCYCLINE. [Suspect]
     Active Substance: DOXYCYCLINE
     Indication: COVID-19
     Route: 065
     Dates: start: 20200320, end: 2020
  6. TOCILIZUMAB. [Concomitant]
     Active Substance: TOCILIZUMAB
     Indication: COVID-19
     Dosage: 1 DOSE
     Route: 042
     Dates: start: 20200320, end: 20200320
  7. OSELTAMIVIR [Concomitant]
     Active Substance: OSELTAMIVIR
     Indication: COVID-19
     Dates: start: 20200320, end: 20200330
  8. HYDROXYCHLOROQUINE [Concomitant]
     Active Substance: HYDROXYCHLOROQUINE
     Indication: COVID-19
     Dosage: ON DAY 0
     Dates: start: 20200320, end: 20200320
  9. LOPINAVIR/RITONAVIR [Concomitant]
     Active Substance: LOPINAVIR\RITONAVIR
     Indication: COVID-19
     Dates: start: 20200320, end: 202003
  10. VANCOMYCIN [Concomitant]
     Active Substance: VANCOMYCIN
     Indication: COVID-19
     Dates: start: 20200320, end: 20200330

REACTIONS (8)
  - Renal failure [Unknown]
  - Intentional product use issue [Recovered/Resolved]
  - Multiple organ dysfunction syndrome [Fatal]
  - Coagulopathy [Unknown]
  - Vasoplegia syndrome [Unknown]
  - Acute respiratory distress syndrome [Unknown]
  - Pneumocystis jirovecii pneumonia [Unknown]
  - Leukocytosis [Unknown]

NARRATIVE: CASE EVENT DATE: 20200320
